FAERS Safety Report 4724940-9 (Version None)
Quarter: 2005Q3

REPORT INFORMATION
  Report Type: 
  Country: None (occurrence: None)
  Receive Date: 20050721
  Receipt Date: 20050706
  Transmission Date: 20060218
  Serious: Yes (Life-Threatening, Hospitalization)
  Sender: FDA-Public Use
  Company Number: DSA_26619_2005

PATIENT
  Age: 79 Year
  Sex: Female
  Weight: 34 kg

DRUGS (3)
  1. ENALAPRIL MALEATE [Suspect]
     Indication: HYPERTENSION
     Dosage: 10 MG QD PO
     Route: 048
     Dates: start: 20041217, end: 20050105
  2. ENALAPRIL MALEATE [Suspect]
     Indication: SCLERODERMA RENAL CRISIS
     Dosage: 10 MG QD PO
     Route: 048
     Dates: start: 20041217, end: 20050105
  3. TORSEMIDE [Concomitant]

REACTIONS (9)
  - BLOOD POTASSIUM INCREASED [None]
  - CONDITION AGGRAVATED [None]
  - GASTROINTESTINAL HAEMORRHAGE [None]
  - HAEMODIALYSIS [None]
  - HAEMOGLOBIN DECREASED [None]
  - HYPERTENSION [None]
  - RENAL ARTERY STENOSIS [None]
  - RENAL FAILURE ACUTE [None]
  - RENAL ISCHAEMIA [None]
